FAERS Safety Report 7771676-6 (Version None)
Quarter: 2011Q3

REPORT INFORMATION
  Report Type: 
  Country: None (occurrence: None)
  Receive Date: 20110922
  Receipt Date: 20101007
  Transmission Date: 20111222
  Serious: Yes (Other)
  Sender: FDA-Public Use
  Company Number: US-ASTRAZENECA-2010SE47302

PATIENT
  Age: 34 Year
  Sex: Male
  Weight: 86.2 kg

DRUGS (4)
  1. SEROQUEL XR [Suspect]
     Indication: BIPOLAR DISORDER
     Route: 048
     Dates: end: 20091101
  2. PRILOSEC OVER THE COUNTER [Concomitant]
     Indication: GASTROOESOPHAGEAL REFLUX DISEASE
     Dosage: 20 MG Q3D
     Route: 048
  3. SEROQUEL XR [Suspect]
     Route: 048
  4. XANAX [Concomitant]
     Indication: ANXIETY
     Route: 048

REACTIONS (2)
  - DRUG DOSE OMISSION [None]
  - CONVULSION [None]
